FAERS Safety Report 24240038 (Version 5)
Quarter: 2024Q4

REPORT INFORMATION
  Report Type: Spontaneous
  Country: US (occurrence: US)
  Receive Date: 20240822
  Receipt Date: 20241021
  Transmission Date: 20250115
  Serious: Yes (Other)
  Sender: PFIZER
  Company Number: US-PFIZER INC-202400241193

PATIENT
  Age: 77 Year
  Sex: Female

DRUGS (20)
  1. IBRANCE [Suspect]
     Active Substance: PALBOCICLIB
     Dosage: 1 CAPSULE (100 MG) ONCE DAILY FOR 21 DAYS OF EACH 28 DAYS CYCLE
     Route: 048
     Dates: start: 20240710
  2. IBRANCE [Suspect]
     Active Substance: PALBOCICLIB
     Dosage: 100 MG DAILY 21 OF 28 DAYS
     Route: 048
     Dates: start: 20240717
  3. IBRANCE [Suspect]
     Active Substance: PALBOCICLIB
     Dosage: 100 MG 21/28 DAYS CYCLE
     Route: 048
     Dates: start: 20240817
  4. ONDANSETRON HYDROCHLORIDE [Concomitant]
     Active Substance: ONDANSETRON HYDROCHLORIDE
     Dosage: 8 MG
     Dates: start: 20240807
  5. MIRTAZAPINE [Concomitant]
     Active Substance: MIRTAZAPINE
     Dosage: UNK
     Dates: start: 20240807
  6. PERCOCET [Concomitant]
     Active Substance: ACETAMINOPHEN\OXYCODONE HYDROCHLORIDE
     Dosage: PRN (AS NEEDED)
     Dates: start: 20240807
  7. METOPROLOL TARTRATE [Concomitant]
     Active Substance: METOPROLOL TARTRATE
     Dosage: 25 MG
     Dates: start: 20240807
  8. VITAMIN B12 [Concomitant]
     Active Substance: CYANOCOBALAMIN
     Dosage: 100 UG
     Route: 048
     Dates: start: 20240807
  9. LORAZEPAM [Concomitant]
     Active Substance: LORAZEPAM
     Dosage: 2 MG
     Dates: start: 20240711
  10. LORAZEPAM [Concomitant]
     Active Substance: LORAZEPAM
     Dosage: 1 MG
     Dates: start: 20240711
  11. VITAMIN C [Concomitant]
     Active Substance: ASCORBIC ACID
     Dosage: UNK
     Route: 048
     Dates: start: 20240711
  12. FAMOTIDINE [Concomitant]
     Active Substance: FAMOTIDINE
     Dosage: 10 MG
     Route: 048
     Dates: start: 20240711
  13. LATANOPROST [Concomitant]
     Active Substance: LATANOPROST
     Dosage: 2.5 ML
     Dates: start: 20240711
  14. CALCIUM CARBONATE [Concomitant]
     Active Substance: CALCIUM CARBONATE
     Dosage: 500-3.125
     Dates: start: 20240711
  15. VITAMIN D3 [Concomitant]
     Active Substance: CHOLECALCIFEROL
     Dosage: 5000 IU
     Dates: start: 20240711
  16. EXEMESTANE [Concomitant]
     Active Substance: EXEMESTANE
     Dosage: 25 MG
     Route: 048
     Dates: start: 20240711
  17. TYLENOL EXTRA STRENGTH [Concomitant]
     Active Substance: ACETAMINOPHEN
     Dosage: 500 MG, PRN (AS NEEDED)
     Dates: start: 20240711
  18. ALBUTEROL SULFATE [Concomitant]
     Active Substance: ALBUTEROL SULFATE
     Dosage: 1800 MG
     Dates: start: 20240711, end: 20240807
  19. ZOFRAN [Concomitant]
     Active Substance: ONDANSETRON HYDROCHLORIDE
     Indication: Nausea
     Dosage: 8 MG, PRN (AS NEEDED)
  20. FASLODEX [Concomitant]
     Active Substance: FULVESTRANT
     Dosage: UNK

REACTIONS (6)
  - Fatigue [Not Recovered/Not Resolved]
  - Alopecia [Not Recovered/Not Resolved]
  - Decreased appetite [Unknown]
  - Back pain [Recovered/Resolved]
  - Chest pain [Recovered/Resolved]
  - Drug hypersensitivity [Recovered/Resolved]

NARRATIVE: CASE EVENT DATE: 20240925
